FAERS Safety Report 7572291-X (Version None)
Quarter: 2011Q2

REPORT INFORMATION
  Report Type: 
  Country: None (occurrence: None)
  Receive Date: 20110624
  Receipt Date: 20110616
  Transmission Date: 20111010
  Serious: Yes (Other)
  Sender: FDA-Public Use
  Company Number: PHHY2011US53822

PATIENT
  Age: 62 Year
  Sex: Male

DRUGS (1)
  1. TOBI [Suspect]
     Dosage: 5 ML, BID

REACTIONS (2)
  - LUNG DISORDER [None]
  - OXYGEN SATURATION DECREASED [None]
